FAERS Safety Report 8775905 (Version 3)
Quarter: 2012Q4

REPORT INFORMATION
  Report Type: 
  Country: US (occurrence: US)
  Receive Date: 20120914
  Receipt Date: 20121005
  Transmission Date: 20130627
  Serious: Yes (Other)
  Sender: FDA-Public Use
  Company Number: US-ASTRAZENECA-2012SE69908

PATIENT
  Age: 54 Year
  Sex: Female
  Weight: 90.7 kg

DRUGS (7)
  1. NEXIUM [Suspect]
     Indication: DYSPEPSIA
     Route: 048
     Dates: start: 2009
  2. TOPROL XL [Suspect]
     Route: 048
  3. STEROIDS [Suspect]
     Route: 065
  4. HYDROMORPHONE [Concomitant]
     Indication: PAIN
  5. DIAZEPAM [Concomitant]
     Indication: BLADDER SPASM
  6. PROMETHAZINE [Concomitant]
  7. CARISOPRODOL [Concomitant]
     Indication: MUSCLE SPASMS

REACTIONS (13)
  - Neoplasm malignant [Unknown]
  - Breast cancer [Unknown]
  - Pain [Unknown]
  - Body height decreased [Unknown]
  - Aphagia [Unknown]
  - Weight increased [Unknown]
  - Dyspnoea [Unknown]
  - Asthenia [Unknown]
  - Dyspepsia [Unknown]
  - Ear discomfort [Unknown]
  - Eating disorder [Unknown]
  - Abdominal pain upper [Unknown]
  - Drug dose omission [Unknown]
